FAERS Safety Report 16861958 (Version 4)
Quarter: 2023Q1

REPORT INFORMATION
  Report Type: Spontaneous
  Country: US (occurrence: None)
  Receive Date: 20190927
  Receipt Date: 20230104
  Transmission Date: 20230418
  Serious: Yes (Hospitalization, Other)
  Sender: FDA-Public Use
  Company Number: 2019SF36597

PATIENT
  Age: 19093 Day
  Sex: Male
  Weight: 113.4 kg

DRUGS (64)
  1. FARXIGA [Suspect]
     Active Substance: DAPAGLIFLOZIN PROPANEDIOL
     Indication: Type 2 diabetes mellitus
     Route: 048
     Dates: start: 20141006
  2. FARXIGA [Suspect]
     Active Substance: DAPAGLIFLOZIN PROPANEDIOL
     Indication: Weight decreased
     Route: 048
     Dates: start: 20141006
  3. FARXIGA [Suspect]
     Active Substance: DAPAGLIFLOZIN PROPANEDIOL
     Indication: Blood glucose decreased
     Route: 048
     Dates: start: 20141006
  4. FARXIGA [Suspect]
     Active Substance: DAPAGLIFLOZIN PROPANEDIOL
     Indication: Blood pressure abnormal
     Route: 048
     Dates: start: 20141006
  5. FARXIGA [Suspect]
     Active Substance: DAPAGLIFLOZIN PROPANEDIOL
     Indication: Type 2 diabetes mellitus
     Dosage: 30 PILLS10.0MG UNKNOWN
     Route: 048
     Dates: start: 20180707
  6. FARXIGA [Suspect]
     Active Substance: DAPAGLIFLOZIN PROPANEDIOL
     Indication: Weight decreased
     Dosage: 30 PILLS10.0MG UNKNOWN
     Route: 048
     Dates: start: 20180707
  7. FARXIGA [Suspect]
     Active Substance: DAPAGLIFLOZIN PROPANEDIOL
     Indication: Blood glucose decreased
     Dosage: 30 PILLS10.0MG UNKNOWN
     Route: 048
     Dates: start: 20180707
  8. FARXIGA [Suspect]
     Active Substance: DAPAGLIFLOZIN PROPANEDIOL
     Indication: Blood pressure abnormal
     Dosage: 30 PILLS10.0MG UNKNOWN
     Route: 048
     Dates: start: 20180707
  9. FARXIGA [Suspect]
     Active Substance: DAPAGLIFLOZIN PROPANEDIOL
     Indication: Type 2 diabetes mellitus
     Dosage: 90 PILLS10.0MG UNKNOWN
     Route: 048
     Dates: start: 20180802
  10. FARXIGA [Suspect]
     Active Substance: DAPAGLIFLOZIN PROPANEDIOL
     Indication: Weight decreased
     Dosage: 90 PILLS10.0MG UNKNOWN
     Route: 048
     Dates: start: 20180802
  11. FARXIGA [Suspect]
     Active Substance: DAPAGLIFLOZIN PROPANEDIOL
     Indication: Blood glucose decreased
     Dosage: 90 PILLS10.0MG UNKNOWN
     Route: 048
     Dates: start: 20180802
  12. FARXIGA [Suspect]
     Active Substance: DAPAGLIFLOZIN PROPANEDIOL
     Indication: Blood pressure abnormal
     Dosage: 90 PILLS10.0MG UNKNOWN
     Route: 048
     Dates: start: 20180802
  13. FARXIGA [Suspect]
     Active Substance: DAPAGLIFLOZIN PROPANEDIOL
     Indication: Type 2 diabetes mellitus
     Dosage: UNKNOWN
     Route: 048
     Dates: start: 20141125
  14. FARXIGA [Suspect]
     Active Substance: DAPAGLIFLOZIN PROPANEDIOL
     Indication: Weight decreased
     Dosage: UNKNOWN
     Route: 048
     Dates: start: 20141125
  15. FARXIGA [Suspect]
     Active Substance: DAPAGLIFLOZIN PROPANEDIOL
     Indication: Blood glucose decreased
     Dosage: UNKNOWN
     Route: 048
     Dates: start: 20141125
  16. FARXIGA [Suspect]
     Active Substance: DAPAGLIFLOZIN PROPANEDIOL
     Indication: Blood pressure abnormal
     Dosage: UNKNOWN
     Route: 048
     Dates: start: 20141125
  17. FARXIGA [Suspect]
     Active Substance: DAPAGLIFLOZIN PROPANEDIOL
     Indication: Type 2 diabetes mellitus
     Dosage: UNKNOWN
     Route: 048
     Dates: start: 20180905
  18. FARXIGA [Suspect]
     Active Substance: DAPAGLIFLOZIN PROPANEDIOL
     Indication: Weight decreased
     Dosage: UNKNOWN
     Route: 048
     Dates: start: 20180905
  19. FARXIGA [Suspect]
     Active Substance: DAPAGLIFLOZIN PROPANEDIOL
     Indication: Blood glucose decreased
     Dosage: UNKNOWN
     Route: 048
     Dates: start: 20180905
  20. FARXIGA [Suspect]
     Active Substance: DAPAGLIFLOZIN PROPANEDIOL
     Indication: Blood pressure abnormal
     Dosage: UNKNOWN
     Route: 048
     Dates: start: 20180905
  21. LANTUS [Concomitant]
     Active Substance: INSULIN GLARGINE
     Dates: start: 20130423
  22. METOPROLOL [Concomitant]
     Active Substance: METOPROLOL
     Dates: start: 20130523
  23. AMLODIPINE [Concomitant]
     Active Substance: AMLODIPINE BESYLATE
     Dates: start: 20131128
  24. METFORMIN [Concomitant]
     Active Substance: METFORMIN HYDROCHLORIDE
     Indication: Diabetes mellitus
     Dates: start: 20130401
  25. ALPRAZOLAM [Concomitant]
     Active Substance: ALPRAZOLAM
     Dates: start: 20130724
  26. DICYCLOMINE [Concomitant]
     Active Substance: DICYCLOMINE HYDROCHLORIDE
     Dates: start: 20131226
  27. ATORVASTATIN [Concomitant]
     Active Substance: ATORVASTATIN
     Dates: start: 20131204
  28. VITAMIN D2 [Concomitant]
     Active Substance: ERGOCALCIFEROL
     Dates: start: 20140602
  29. VICTOZA [Concomitant]
     Active Substance: LIRAGLUTIDE
     Dates: start: 20140715
  30. BYDUREON [Concomitant]
     Active Substance: EXENATIDE
     Dates: start: 20141003
  31. BENZONATATE [Concomitant]
     Active Substance: BENZONATATE
     Dates: start: 20150106
  32. TRULICITY [Concomitant]
     Active Substance: DULAGLUTIDE
     Indication: Diabetes mellitus
     Dates: start: 20150613
  33. RANITIDINE HYDROCHLORIDE [Concomitant]
     Active Substance: RANITIDINE HYDROCHLORIDE
     Dates: start: 20150817
  34. PREDNISONE [Concomitant]
     Active Substance: PREDNISONE
     Dates: start: 20150817
  35. SULFAMETHOXAZOLE [Concomitant]
     Active Substance: SULFAMETHOXAZOLE
     Dates: start: 20150817
  36. TAMSULOSIN [Concomitant]
     Active Substance: TAMSULOSIN
     Dates: start: 20180513
  37. TRETINOIN [Concomitant]
     Active Substance: TRETINOIN
     Dates: start: 20180513
  38. GLIPIZIDE [Concomitant]
     Active Substance: GLIPIZIDE
     Dates: start: 20180910
  39. TRAMADOL [Concomitant]
     Active Substance: TRAMADOL
     Dates: start: 20180904
  40. TORADOL [Concomitant]
     Active Substance: KETOROLAC TROMETHAMINE
  41. ZANAFLEX [Concomitant]
     Active Substance: TIZANIDINE HYDROCHLORIDE
  42. VANCOMYCIN [Concomitant]
     Active Substance: VANCOMYCIN
  43. DICLOFENAC SODIUM [Concomitant]
     Active Substance: DICLOFENAC SODIUM
  44. HEPARIN [Concomitant]
     Active Substance: HEPARIN SODIUM
  45. NOVOLOG [Concomitant]
     Active Substance: INSULIN ASPART
  46. BELLADONNA OPIUM [Concomitant]
  47. MORPHINE [Concomitant]
     Active Substance: MORPHINE
  48. PHENAZOPYRIDINE [Concomitant]
     Active Substance: PHENAZOPYRIDINE
  49. ACETAMINOPHEN [Concomitant]
     Active Substance: ACETAMINOPHEN
  50. DIPHENHYDRAMINE [Concomitant]
     Active Substance: DIPHENHYDRAMINE
  51. HYDROMORPHONE [Concomitant]
     Active Substance: HYDROMORPHONE
  52. ONDANSETRON [Concomitant]
     Active Substance: ONDANSETRON
  53. OXYCODONE [Concomitant]
     Active Substance: OXYCODONE
  54. CEPHALEXIN [Concomitant]
     Active Substance: CEPHALEXIN
     Dates: start: 20180908
  55. GLIMEPIRIDE [Concomitant]
     Active Substance: GLIMEPIRIDE
     Route: 065
  56. TRILIPIX [Concomitant]
     Active Substance: FENOFIBRIC ACID
     Route: 065
  57. TRAZODONE [Concomitant]
     Active Substance: TRAZODONE HYDROCHLORIDE
     Route: 065
  58. AMPICILLIN [Concomitant]
     Active Substance: AMPICILLIN
     Route: 065
  59. TRICOR [Concomitant]
     Active Substance: FENOFIBRATE
     Route: 065
  60. CLOBEX [Concomitant]
     Active Substance: CLOBETASOL PROPIONATE
     Route: 065
  61. LEVOCETIRIZINE [Concomitant]
     Active Substance: LEVOCETIRIZINE
     Route: 065
  62. VITAMINS [Concomitant]
     Active Substance: VITAMINS
     Route: 065
     Dates: start: 20200624
  63. DEMEROL [Concomitant]
     Active Substance: MEPERIDINE HYDROCHLORIDE
  64. REGLAN [Concomitant]
     Active Substance: METOCLOPRAMIDE HYDROCHLORIDE

REACTIONS (8)
  - Fournier^s gangrene [Unknown]
  - Sepsis [Unknown]
  - Cellulitis [Unknown]
  - Abscess [Unknown]
  - Necrotising soft tissue infection [Unknown]
  - Scrotal abscess [Unknown]
  - Necrotising fasciitis [Unknown]
  - Scrotal gangrene [Unknown]

NARRATIVE: CASE EVENT DATE: 20180905
